FAERS Safety Report 7951737-9 (Version None)
Quarter: 2011Q4

REPORT INFORMATION
  Report Type: 
  Country: None (occurrence: None)
  Receive Date: 20111130
  Receipt Date: 20111130
  Transmission Date: 20120403
  Serious: Yes (Hospitalization)
  Sender: FDA-Public Use
  Company Number: None

PATIENT
  Age: 59 Year
  Sex: Female
  Weight: 45.3597 kg

DRUGS (7)
  1. FENTANYL [Concomitant]
  2. LENALIDOMIDE [Suspect]
     Indication: HEPATIC NEOPLASM MALIGNANT
     Dosage: 25MG, PO QD
     Route: 048
     Dates: start: 20111107, end: 20111118
  3. PREDNISONE TAB [Concomitant]
  4. BUPROIN [Concomitant]
  5. ADVAIR DISKUS 100/50 [Concomitant]
  6. OXYCODONE HCL [Concomitant]
  7. ALBUTEROL [Concomitant]

REACTIONS (5)
  - DYSARTHRIA [None]
  - TACHYPHRENIA [None]
  - APHASIA [None]
  - CONFUSIONAL STATE [None]
  - AMMONIA INCREASED [None]
